FAERS Safety Report 7477305-3 (Version None)
Quarter: 2011Q2

REPORT INFORMATION
  Report Type: 
  Country: None (occurrence: None)
  Receive Date: 20110513
  Receipt Date: 20110429
  Transmission Date: 20111010
  Serious: No
  Sender: FDA-Public Use
  Company Number: US-BIOGENIDEC-2010BI039451

PATIENT
  Sex: Female

DRUGS (2)
  1. TYSABRI [Suspect]
     Indication: MULTIPLE SCLEROSIS
     Route: 042
     Dates: start: 20090717, end: 20101201
  2. SOLU-MEDROL [Concomitant]
     Indication: MULTIPLE SCLEROSIS

REACTIONS (14)
  - ADVERSE DRUG REACTION [None]
  - UHTHOFF'S PHENOMENON [None]
  - MIGRAINE [None]
  - SINUS CONGESTION [None]
  - HEADACHE [None]
  - FLUSHING [None]
  - FATIGUE [None]
  - MULTIPLE SCLEROSIS RELAPSE [None]
  - ANTIBODY TEST POSITIVE [None]
  - SKIN WRINKLING [None]
  - TREMOR [None]
  - PSYCHOMOTOR HYPERACTIVITY [None]
  - WEIGHT DECREASED [None]
  - FEELING HOT [None]
